FAERS Safety Report 21358884 (Version 1)
Quarter: 2022Q3

REPORT INFORMATION
  Report Type: Spontaneous
  Country: IN (occurrence: IN)
  Receive Date: 20220921
  Receipt Date: 20220921
  Transmission Date: 20221027
  Serious: Yes (Other)
  Sender: FDA-Public Use
  Company Number: IN-NOVARTISPH-NVSC2022IN190415

PATIENT
  Sex: Female
  Weight: 50.5 kg

DRUGS (2)
  1. TASIGNA [Suspect]
     Active Substance: NILOTINIB
     Indication: Philadelphia positive acute lymphocytic leukaemia
     Dosage: 150 MG, BID
     Route: 048
     Dates: start: 20190407, end: 20190918
  2. FERROUS FUMARATE\FOLIC ACID\ZINC SULFATE [Suspect]
     Active Substance: FERROUS FUMARATE\FOLIC ACID\ZINC SULFATE
     Indication: Anaemia
     Dosage: UNK, QD
     Route: 048

REACTIONS (3)
  - Premature delivery [Unknown]
  - Maternal exposure during pregnancy [Unknown]
  - Product use in unapproved indication [Unknown]
